FAERS Safety Report 18216497 (Version 1)
Quarter: 2020Q3

REPORT INFORMATION
  Report Type: Spontaneous
  Country: US (occurrence: US)
  Receive Date: 20200901
  Receipt Date: 20200901
  Transmission Date: 20201103
  Serious: No
  Sender: FDA-Public Use
  Company Number: US-SA-2020SA233225

PATIENT

DRUGS (2)
  1. AMBIEN [Suspect]
     Active Substance: ZOLPIDEM TARTRATE
     Dosage: GENERIC DOSING
  2. AMBIEN [Suspect]
     Active Substance: ZOLPIDEM TARTRATE
     Indication: SLEEP DISORDER
     Dosage: 1/4 TABLET (2.5 MG) AT BEDTIME, AND THEN 1/4 TABLET (2.5 MG) AT MIDNIGHT

REACTIONS (5)
  - Drug resistance [Unknown]
  - Drug tolerance [Unknown]
  - Intentional product misuse [Unknown]
  - Therapeutic product effect decreased [Unknown]
  - Product use issue [Unknown]
